FAERS Safety Report 7026870-9 (Version None)
Quarter: 2010Q4

REPORT INFORMATION
  Report Type: 
  Country: None (occurrence: None)
  Receive Date: 20101004
  Receipt Date: 20100929
  Transmission Date: 20110411
  Serious: Yes (Hospitalization)
  Sender: FDA-Public Use
  Company Number: A0835973A

PATIENT
  Age: 65 Year
  Sex: Male
  Weight: 127.3 kg

DRUGS (5)
  1. AVANDIA [Suspect]
     Dosage: 4MG PER DAY
     Route: 048
     Dates: start: 19990101, end: 20071127
  2. GLUCOPHAGE [Concomitant]
  3. ENALAPRIL MALEATE [Concomitant]
  4. GEMFIBROZIL [Concomitant]
  5. GLYBURIDE [Concomitant]

REACTIONS (2)
  - CORONARY ARTERY DISEASE [None]
  - MYOCARDIAL INFARCTION [None]
